FAERS Safety Report 5013682-0 (Version None)
Quarter: 2006Q2

REPORT INFORMATION
  Report Type: 
  Country: None (occurrence: None)
  Receive Date: 20060525
  Receipt Date: 20060515
  Transmission Date: 20061013
  Serious: Yes (Other)
  Sender: FDA-Public Use
  Company Number: 2006-DE-02492GD

PATIENT
  Age: 19 Month
  Sex: Female
  Weight: 9 kg

DRUGS (1)
  1. CALCIUM CARBONATE (CALCIUM CARBONATE) [Suspect]
     Indication: HYPERPHOSPHATAEMIA
     Dosage: 3.75 G, INCREASED TO 5G (NR, 3 TIMES/DAY, CHANGED TO 4 TIMES/DAY) SEE TEXT

REACTIONS (4)
  - BLOOD CALCIUM INCREASED [None]
  - BLOOD PHOSPHORUS INCREASED [None]
  - CALCIUM PHOSPHATE PRODUCT INCREASED [None]
  - DRUG INEFFECTIVE [None]
